FAERS Safety Report 8844999 (Version 2)
Quarter: 2012Q4

REPORT INFORMATION
  Report Type: 
  Country: US (occurrence: US)
  Receive Date: 20121017
  Receipt Date: 20121025
  Transmission Date: 20130627
  Serious: Yes (Other)
  Sender: FDA-Public Use
  Company Number: US-009507513-1210USA005292

PATIENT
  Age: 76 Year
  Sex: Female

DRUGS (6)
  1. JANUMET [Suspect]
     Indication: RENAL DISORDER
     Dosage: 50/500 mg
     Route: 048
  2. JANUMET [Suspect]
     Indication: DIABETES MELLITUS
  3. LISINOPRIL [Concomitant]
  4. CYANOCOBALAMIN [Concomitant]
  5. FOLIC ACID [Concomitant]
  6. METANX [Concomitant]

REACTIONS (2)
  - Renal failure acute [Unknown]
  - Off label use [Unknown]
